FAERS Safety Report 24572496 (Version 1)
Quarter: 2024Q4

REPORT INFORMATION
  Report Type: Spontaneous
  Country: US (occurrence: None)
  Receive Date: 20241101
  Receipt Date: 20241101
  Transmission Date: 20250115
  Serious: No
  Sender: Public
  Company Number: None

PATIENT
  Sex: Female
  Weight: 46.8 kg

DRUGS (1)
  1. OMNITROPE [Suspect]
     Active Substance: SOMATROPIN
     Indication: In vitro fertilisation
     Dosage: OTHER QUANTITY : 4 INJECTION(S);?
     Dates: start: 20240709, end: 20240827

REACTIONS (1)
  - Carpal tunnel syndrome [None]
